FAERS Safety Report 26027250 (Version 2)
Quarter: 2025Q4

REPORT INFORMATION
  Report Type: Spontaneous
  Country: US (occurrence: US)
  Receive Date: 20251111
  Receipt Date: 20251119
  Transmission Date: 20260118
  Serious: Yes (Life-Threatening, Hospitalization)
  Sender: TEVA
  Company Number: US-TEVA-VS-3389979

PATIENT
  Age: 57 Year
  Sex: Female

DRUGS (5)
  1. DEXAMETHASONE [Suspect]
     Active Substance: DEXAMETHASONE
     Indication: COVID-19
     Route: 065
  2. ERTAPENEM [Suspect]
     Active Substance: ERTAPENEM
     Indication: Urinary tract infection
     Route: 065
  3. ENOXAPARIN [Suspect]
     Active Substance: ENOXAPARIN
     Indication: Pulmonary embolism
     Route: 065
  4. REMDESIVIR [Suspect]
     Active Substance: REMDESIVIR
     Indication: COVID-19
     Route: 065
  5. CEFTRIAXONE [Concomitant]
     Active Substance: CEFTRIAXONE
     Indication: Urinary tract infection
     Route: 065

REACTIONS (3)
  - Drug ineffective [Unknown]
  - Drug ineffective for unapproved indication [Unknown]
  - Off label use [Unknown]
